FAERS Safety Report 15029542 (Version 1)
Quarter: 2018Q2

REPORT INFORMATION
  Report Type: Spontaneous
  Country: US (occurrence: US)
  Receive Date: 20180529
  Receipt Date: 20180529
  Transmission Date: 20180711
  Serious: No
  Sender: FDA-Public Use
  Company Number: None

PATIENT
  Age: 63 Year
  Sex: Female

DRUGS (1)
  1. AVONEX [Suspect]
     Active Substance: INTERFERON BETA-1A
     Indication: MULTIPLE SCLEROSIS
     Route: 030
     Dates: start: 20170302

REACTIONS (6)
  - Arthralgia [None]
  - Nerve compression [None]
  - Injection site pain [None]
  - Drug ineffective [None]
  - Gait disturbance [None]
  - Wrong technique in product usage process [None]

NARRATIVE: CASE EVENT DATE: 20180525
